FAERS Safety Report 8067411-7 (Version None)
Quarter: 2012Q1

REPORT INFORMATION
  Report Type: 
  Country: None (occurrence: None)
  Receive Date: 20120124
  Receipt Date: 20120120
  Transmission Date: 20120608
  Serious: Yes (Hospitalization)
  Sender: FDA-Public Use
  Company Number: DE-AMGEN-DEUNI2011057503

PATIENT
  Age: 82 Year
  Sex: Female

DRUGS (7)
  1. ROMIPLOSTIM [Suspect]
     Indication: IDIOPATHIC THROMBOCYTOPENIC PURPURA
     Dosage: 50 MUG, Q2WK
     Route: 058
     Dates: start: 20090612
  2. PANTOPRAZOLE [Concomitant]
     Route: 048
  3. RELIX [Concomitant]
     Dosage: 5 MG, UNK
     Route: 048
  4. LEVOTHYROXINE SODIUM [Concomitant]
     Route: 048
  5. MOXONIDIN [Concomitant]
     Route: 048
  6. MARCUMAR [Concomitant]
     Dosage: UNK
     Route: 048
     Dates: start: 20100501
  7. PREDNISOLONE [Concomitant]
     Indication: IDIOPATHIC THROMBOCYTOPENIC PURPURA
     Dosage: UNK
     Dates: start: 20001001

REACTIONS (3)
  - POST PROCEDURAL HAEMORRHAGE [None]
  - PAPILLA OF VATER STENOSIS [None]
  - SPHINCTER OF ODDI DYSFUNCTION [None]
